FAERS Safety Report 20892096 (Version 5)
Quarter: 2022Q4

REPORT INFORMATION
  Report Type: Report from Study
  Country: CA (occurrence: CA)
  Receive Date: 20220530
  Receipt Date: 20221212
  Transmission Date: 20230113
  Serious: Yes (Hospitalization)
  Sender: FDA-Public Use
  Company Number: CA-Horizon-2020HZN01402

PATIENT

DRUGS (8)
  1. PROCYSBI [Suspect]
     Active Substance: CYSTEAMINE BITARTRATE
     Indication: Cystinosis
     Dosage: 600MG BID
     Route: 048
     Dates: start: 20180715
  2. PROCYSBI [Suspect]
     Active Substance: CYSTEAMINE BITARTRATE
     Dosage: 675MG (MORNING) AND 600MG (EVENING/NIGHT)
     Route: 065
  3. PROCYSBI [Suspect]
     Active Substance: CYSTEAMINE BITARTRATE
     Dosage: RESTARTED 675MG (MORNING) AND 600MG (EVENING/NIGHT)
     Route: 065
     Dates: start: 20221104
  4. BACTRIM [Concomitant]
     Active Substance: SULFAMETHOXAZOLE\TRIMETHOPRIM
     Indication: Prophylaxis
     Dosage: UNK
     Route: 065
     Dates: start: 201806
  5. SYNTHROID [Concomitant]
     Active Substance: LEVOTHYROXINE SODIUM
     Indication: Blood pressure management
     Route: 065
  6. CYSTADROPS [Concomitant]
     Active Substance: CYSTEAMINE HYDROCHLORIDE
     Indication: Product used for unknown indication
     Route: 065
  7. CYSTAGON [Concomitant]
     Active Substance: CYSTEAMINE BITARTRATE
     Indication: Product used for unknown indication
     Dosage: TAKING IT SINCE 10 YRS.
     Route: 065
  8. UNSPECIFIED INGREDIENT [Concomitant]
     Active Substance: UNSPECIFIED INGREDIENT
     Indication: Product used for unknown indication
     Dosage: UNK
     Route: 065

REACTIONS (19)
  - Dysphagia [Recovered/Resolved]
  - Product solubility abnormal [Unknown]
  - Sensation of foreign body [Unknown]
  - Myalgia [Unknown]
  - Arthralgia [Recovering/Resolving]
  - Feeling cold [Recovered/Resolved]
  - Dyspepsia [Unknown]
  - Nausea [Recovering/Resolving]
  - Abdominal pain upper [Recovered/Resolved]
  - Diarrhoea [Recovered/Resolved]
  - Dehydration [Unknown]
  - Oropharyngeal pain [Recovered/Resolved]
  - Hypervolaemia [Recovered/Resolved]
  - Pulmonary oedema [Recovered/Resolved]
  - Adverse event [Unknown]
  - Stress [Unknown]
  - Illness [Unknown]
  - Treatment noncompliance [Recovered/Resolved]
  - Incorrect dose administered [Unknown]

NARRATIVE: CASE EVENT DATE: 20220101
